FAERS Safety Report 20124893 (Version 1)
Quarter: 2021Q4

REPORT INFORMATION
  Report Type: Spontaneous
  Country: US (occurrence: None)
  Receive Date: 20211126
  Receipt Date: 20211126
  Transmission Date: 20220303
  Serious: Yes (Other)
  Sender: FDA-Public Use
  Company Number: None

PATIENT
  Sex: Female

DRUGS (15)
  1. CAPECITABINE [Suspect]
     Active Substance: CAPECITABINE
     Indication: Breast cancer
     Dosage: FREQUENCY : TWICE A DAY;?
     Route: 048
     Dates: start: 20210220
  2. VITAMIN D [Concomitant]
     Active Substance: VITAMIN D NOS
  3. PROMETHAZINE [Concomitant]
     Active Substance: PROMETHAZINE HYDROCHLORIDE
  4. TEMAZEPAM [Concomitant]
     Active Substance: TEMAZEPAM
  5. CATHFLO ACTIVASE [Concomitant]
     Active Substance: ALTEPLASE
  6. ONDANSETRON [Concomitant]
     Active Substance: ONDANSETRON
  7. CEVIMELINE [Concomitant]
     Active Substance: CEVIMELINE
  8. CETIRIZINE [Concomitant]
     Active Substance: CETIRIZINE HYDROCHLORIDE
  9. IBUPROFEN [Concomitant]
     Active Substance: IBUPROFEN
  10. LORAZEPA [Concomitant]
  11. CAPECITABINE [Concomitant]
     Active Substance: CAPECITABINE
  12. TUKYSA [Concomitant]
     Active Substance: TUCATINIB
  13. EVOXAC [Concomitant]
     Active Substance: CEVIMELINE HYDROCHLORIDE
  14. PLAQUENIL [Concomitant]
     Active Substance: HYDROXYCHLOROQUINE SULFATE
  15. BUPROPION [Concomitant]
     Active Substance: BUPROPION

REACTIONS (3)
  - Malaise [None]
  - Asthenia [None]
  - Therapy cessation [None]
